FAERS Safety Report 12352287 (Version 3)
Quarter: 2016Q3

REPORT INFORMATION
  Report Type: Spontaneous
  Country: US (occurrence: US)
  Receive Date: 20160510
  Receipt Date: 20160822
  Transmission Date: 20161109
  Serious: Yes (Hospitalization, Other)
  Sender: FDA-Public Use
  Company Number: US-SA-2016SA088096

PATIENT
  Age: 77 Year
  Sex: Female
  Weight: 81.64 kg

DRUGS (3)
  1. APIDRA SOLOSTAR [Suspect]
     Active Substance: INSULIN GLULISINE
     Indication: TYPE 1 DIABETES MELLITUS
     Dosage: DOSE:2-10 UNITS?DAILY DOSE: 6-30 UNIT
     Route: 065
     Dates: start: 2001
  2. LANTUS [Suspect]
     Active Substance: INSULIN GLARGINE
     Route: 065
  3. SOLOSTAR [Suspect]
     Active Substance: DEVICE
     Indication: TYPE 1 DIABETES MELLITUS
     Dates: start: 2001

REACTIONS (5)
  - Device issue [Unknown]
  - Cardiac failure congestive [Unknown]
  - Myocardial infarction [Unknown]
  - Hyperglycaemia [Unknown]
  - Arthropathy [Unknown]

NARRATIVE: CASE EVENT DATE: 2013
